FAERS Safety Report 7379890-9 (Version None)
Quarter: 2011Q1

REPORT INFORMATION
  Report Type: 
  Country: None (occurrence: None)
  Receive Date: 20110329
  Receipt Date: 20110322
  Transmission Date: 20110831
  Serious: Yes (Death, Hospitalization)
  Sender: FDA-Public Use
  Company Number: BR-ELI_LILLY_AND_COMPANY-BR201004004997

PATIENT
  Sex: Female
  Weight: 49.8 kg

DRUGS (9)
  1. GEMCITABINE HYDROCHLORIDE [Suspect]
     Indication: BREAST CANCER METASTATIC
     Dosage: 1250 MG/M2, OTHER
     Route: 042
     Dates: start: 20100304
  2. HYDROCHLOROTHIAZIDE [Concomitant]
     Dosage: UNK, UNKNOWN
     Route: 065
     Dates: start: 20070201
  3. PACLITAXEL [Suspect]
     Indication: BREAST CANCER METASTATIC
     Dosage: 175 MG/M2, OTHER
     Route: 042
     Dates: start: 20100304
  4. PACLITAXEL [Suspect]
     Dosage: 175 MG/M2, OTHER
     Route: 042
     Dates: start: 20100415
  5. PROPRANOLOL [Concomitant]
     Dosage: UNK, UNKNOWN
     Route: 065
     Dates: start: 20100223
  6. GEMCITABINE HYDROCHLORIDE [Suspect]
     Dosage: 1250 MG/M2, OTHER
     Route: 042
     Dates: start: 20100415
  7. METFORMINE [Concomitant]
     Dosage: UNK, UNKNOWN
     Route: 065
     Dates: start: 20070701
  8. GLIBENCLAMIDE [Concomitant]
     Dosage: UNK, UNKNOWN
     Route: 065
     Dates: start: 20070201
  9. CAPTOPRIL [Concomitant]
     Dosage: UNK, UNKNOWN
     Route: 065
     Dates: start: 20100223

REACTIONS (3)
  - HOSPITALISATION [None]
  - CARDIAC ARREST [None]
  - NEOPLASM MALIGNANT [None]
